FAERS Safety Report 9863809 (Version 1)
Quarter: 2014Q1

REPORT INFORMATION
  Report Type: Spontaneous
  Country: US (occurrence: US)
  Receive Date: 20140203
  Receipt Date: 20140203
  Transmission Date: 20141002
  Serious: Yes (Other)
  Sender: FDA-Public Use
  Company Number: US-GLAXOSMITHKLINE-A1032715A

PATIENT
  Age: 75 Year
  Sex: 0

DRUGS (1)
  1. AVANDIA [Suspect]
     Indication: DIABETES MELLITUS
     Dosage: 8MG PER DAY
     Route: 048
     Dates: start: 20010416, end: 20101102

REACTIONS (7)
  - Angina pectoris [Unknown]
  - Pulmonary hypertension [Unknown]
  - Cystoid macular oedema [Unknown]
  - Cardiac failure congestive [Unknown]
  - Cystitis [Unknown]
  - Bone density decreased [Unknown]
  - Ischaemia [Unknown]
